FAERS Safety Report 10447326 (Version 3)
Quarter: 2014Q4

REPORT INFORMATION
  Report Type: Spontaneous
  Country: US (occurrence: US)
  Receive Date: 20140911
  Receipt Date: 20141202
  Transmission Date: 20150528
  Serious: Yes (Hospitalization)
  Sender: FDA-Public Use
  Company Number: US-BAYER-2014-135556

PATIENT
  Age: 24 Year
  Sex: Female
  Weight: 97.51 kg

DRUGS (5)
  1. PRENATAL 1+1 [VIT C,CA+,D3,CU+,B12,B9,FE+,B3,B6,RETINOL,B2,B1,VIT [Concomitant]
     Dosage: 1 DF, QD
     Route: 048
  2. ZOLOFT [Concomitant]
     Active Substance: SERTRALINE HYDROCHLORIDE
     Dosage: 25 MG, DAILY
  3. AZITHROMYCIN [Concomitant]
     Active Substance: AZITHROMYCIN ANHYDROUS
     Route: 048
  4. ALBUTEROL. [Concomitant]
     Active Substance: ALBUTEROL
     Dosage: 90 UNK, UNK
  5. MIRENA [Suspect]
     Active Substance: LEVONORGESTREL
     Indication: CONTRACEPTION
     Dosage: 20 MCG/24HR, CONT
     Route: 015
     Dates: start: 201108, end: 20111013

REACTIONS (5)
  - Device issue [None]
  - Pain [None]
  - Uterine perforation [None]
  - Injury [None]
  - Emotional distress [None]

NARRATIVE: CASE EVENT DATE: 201108
